FAERS Safety Report 5133872-6 (Version None)
Quarter: 2006Q4

REPORT INFORMATION
  Report Type: 
  Country: None (occurrence: None)
  Receive Date: 20061018
  Receipt Date: 20061009
  Transmission Date: 20070319
  Serious: Yes (Death)
  Sender: FDA-Public Use
  Company Number: 2006US000409

PATIENT
  Age: 69 Year
  Sex: Male

DRUGS (12)
  1. PROGRAF [Suspect]
     Indication: PROPHYLAXIS AGAINST TRANSPLANT REJECTION
     Dosage: 0.5 MG, UID/QD, ORAL
     Route: 048
     Dates: start: 20051117, end: 20060901
  2. MYCOPHENOLATE MOFETIL [Suspect]
     Indication: PROPHYLAXIS AGAINST TRANSPLANT REJECTION
     Dosage: 250 MG, BID, ORAL
     Route: 048
     Dates: start: 20051117, end: 20060509
  3. PREDNISONE TAB [Suspect]
     Indication: PROPHYLAXIS AGAINST TRANSPLANT REJECTION
     Dosage: 20 MG, UID/QD, ORAL
     Route: 048
     Dates: start: 20051117, end: 20051121
  4. THYMOGLOBULIN [Suspect]
     Indication: PROPHYLAXIS AGAINST TRANSPLANT REJECTION
     Dosage: 100 MG, UID/QD, IV NOS
     Route: 042
     Dates: start: 20051116, end: 20051120
  5. MYCELEX [Concomitant]
  6. DILTIAZEM HCL [Concomitant]
  7. PEPCID [Concomitant]
  8. COUMADIN [Concomitant]
  9. FLOMAX [Concomitant]
  10. SENOKOT (SENNA ALEXANDRINA) [Concomitant]
  11. MAGNESIUM OXIDE (MAGNESIUM OXIDE) [Concomitant]
  12. PROSCAR [Concomitant]

REACTIONS (1)
  - MULTIPLE MYELOMA [None]
